FAERS Safety Report 4807186-5 (Version None)
Quarter: 2005Q4

REPORT INFORMATION
  Report Type: 
  Country: None (occurrence: None)
  Receive Date: 20051024
  Receipt Date: 20051012
  Transmission Date: 20060501
  Serious: Yes (Other)
  Sender: FDA-Public Use
  Company Number: GR-AMGEN-UK154456

PATIENT
  Sex: Female
  Weight: 76.4 kg

DRUGS (10)
  1. ARANESP [Suspect]
     Indication: ANAEMIA
     Route: 058
     Dates: start: 20041201
  2. TITRALAC [Concomitant]
  3. PLENDIL [Concomitant]
  4. PLENDIL [Concomitant]
  5. FILICINE [Concomitant]
  6. LIPITOR [Concomitant]
  7. MEDROL [Concomitant]
  8. CALCITRIOL [Concomitant]
  9. TARDYFERON [Concomitant]
  10. MONOPRIL [Concomitant]

REACTIONS (2)
  - HEPATIC NECROSIS [None]
  - MENORRHAGIA [None]
